FAERS Safety Report 8228541-X (Version None)
Quarter: 2012Q1

REPORT INFORMATION
  Report Type: 
  Country: None (occurrence: None)
  Receive Date: 20120322
  Receipt Date: 20120319
  Transmission Date: 20120608
  Serious: Yes (Death, Other)
  Sender: FDA-Public Use
  Company Number: CA-ABBOTT-12P-028-0915121-00

PATIENT
  Sex: Female

DRUGS (4)
  1. HUMIRA [Suspect]
     Dosage: 80 MG AT WEEK 2
     Route: 058
     Dates: start: 20120218, end: 20120218
  2. HUMIRA [Suspect]
     Dosage: 40 MG LAST DOSE RECEIVED
     Route: 058
     Dates: start: 20120303, end: 20120303
  3. HUMIRA [Suspect]
     Indication: COLITIS ULCERATIVE
     Dosage: 160 MG AT WEEK 0
     Route: 058
     Dates: start: 20120204, end: 20120204
  4. PREDNISONE TAB [Concomitant]
     Indication: PRODUCT USED FOR UNKNOWN INDICATION

REACTIONS (2)
  - CARDIAC ARREST [None]
  - PULMONARY EMBOLISM [None]
